FAERS Safety Report 4916837-6 (Version None)
Quarter: 2006Q1

REPORT INFORMATION
  Report Type: 
  Country: None (occurrence: None)
  Receive Date: 20060216
  Receipt Date: 20060216
  Transmission Date: 20060701
  Serious: Yes (Death)
  Sender: FDA-Public Use
  Company Number: None

PATIENT
  Age: 63 Year
  Sex: Male
  Weight: 96 kg

DRUGS (2)
  1. APROTININ [Suspect]
     Indication: OPERATIVE HAEMORRHAGE
     Dosage: 25 ML /HR CONTINUIOUS IV DRIP
     Route: 041
     Dates: start: 20051221, end: 20051221
  2. NOVOSEVEN [Suspect]
     Indication: POST PROCEDURAL HAEMORRHAGE
     Dosage: 8.1 MG ONCE IV BOLUS
     Route: 040
     Dates: start: 20051221, end: 20051221

REACTIONS (6)
  - CEREBROVASCULAR ACCIDENT [None]
  - CHILLS [None]
  - CONVULSION [None]
  - EMBOLISM [None]
  - MENTAL STATUS CHANGES [None]
  - POST PROCEDURAL HAEMORRHAGE [None]
